FAERS Safety Report 4282111-7 (Version None)
Quarter: 2004Q1

REPORT INFORMATION
  Report Type: 
  Country: None (occurrence: None)
  Receive Date: 20040130
  Receipt Date: 20030724
  Transmission Date: 20041129
  Serious: No
  Sender: FDA-Public Use
  Company Number: US-BRISTOL-MYERS SQUIBB COMPANY-12334900

PATIENT
  Age: 59 Year
  Sex: Female

DRUGS (5)
  1. DESYREL [Suspect]
     Indication: SLEEP DISORDER
     Dosage: STARTED THERAPY ^ABOUT A MONTH AGO^
     Route: 048
     Dates: start: 20030101
  2. LEXAPRO [Concomitant]
  3. WELLBUTRIN [Concomitant]
  4. ZELNORM [Concomitant]
  5. HORMONE THERAPY [Concomitant]

REACTIONS (2)
  - EYE SWELLING [None]
  - PITTING OEDEMA [None]
